FAERS Safety Report 6762359-X (Version None)
Quarter: 2010Q2

REPORT INFORMATION
  Report Type: 
  Country: None (occurrence: None)
  Receive Date: 20100609
  Receipt Date: 20100528
  Transmission Date: 20101027
  Serious: Yes (Hospitalization)
  Sender: FDA-Public Use
  Company Number: JP-ROCHE-681985

PATIENT
  Sex: Female

DRUGS (7)
  1. TOCILIZUMAB [Suspect]
     Indication: RHEUMATOID ARTHRITIS
     Route: 041
     Dates: start: 20091111, end: 20091111
  2. TOCILIZUMAB [Suspect]
     Route: 041
     Dates: start: 20091210, end: 20091210
  3. TOCILIZUMAB [Suspect]
     Route: 041
     Dates: start: 20100106, end: 20100106
  4. METOLATE [Concomitant]
     Route: 048
     Dates: start: 20100106
  5. PREDNISOLONE [Concomitant]
     Route: 048
     Dates: start: 20100106
  6. FOLIAMIN [Concomitant]
     Dosage: FORM: PERORAL AGENT
     Route: 048
     Dates: start: 20100106
  7. CLINORIL [Concomitant]
     Route: 048
     Dates: start: 20100106

REACTIONS (2)
  - MUCOSAL NECROSIS [None]
  - OSTEOMYELITIS [None]
